FAERS Safety Report 10732959 (Version 2)
Quarter: 2015Q2

REPORT INFORMATION
  Report Type: Spontaneous
  Country: US (occurrence: US)
  Receive Date: 20150123
  Receipt Date: 20150511
  Transmission Date: 20150821
  Serious: Yes (Hospitalization, Other)
  Sender: FDA-Public Use
  Company Number: US-PFIZER INC-2015027829

PATIENT
  Sex: Male

DRUGS (2)
  1. DEPO-TESTOSTERONE [Suspect]
     Active Substance: TESTOSTERONE CYPIONATE
     Indication: BLOOD TESTOSTERONE DECREASED
     Dosage: UNK, TWICE IN A MONTH
     Dates: start: 20090325, end: 20130619
  2. DEPO-TESTOSTERONE [Suspect]
     Active Substance: TESTOSTERONE CYPIONATE
     Indication: HORMONE REPLACEMENT THERAPY

REACTIONS (5)
  - Pulmonary embolism [Not Recovered/Not Resolved]
  - Ischaemic stroke [Unknown]
  - Myocardial infarction [Unknown]
  - Lung disorder [Not Recovered/Not Resolved]
  - Deep vein thrombosis [Not Recovered/Not Resolved]
